FAERS Safety Report 22146583 (Version 1)
Quarter: 2023Q1

REPORT INFORMATION
  Report Type: Spontaneous
  Country: US (occurrence: None)
  Receive Date: 20230327
  Receipt Date: 20230327
  Transmission Date: 20230417
  Serious: No
  Sender: FDA-Public Use
  Company Number: None

PATIENT
  Age: 66 Year
  Sex: Female
  Weight: 69.85 kg

DRUGS (1)
  1. FORTEO [Suspect]
     Active Substance: TERIPARATIDE
     Indication: Senile osteoporosis
     Dosage: OTHER STRENGTH : 600MCG/2.4ML;?FREQUENCY : DAILY;?
     Route: 058
     Dates: start: 202211

REACTIONS (2)
  - Lower limb fracture [None]
  - Intentional dose omission [None]
